FAERS Safety Report 5612771-7 (Version None)
Quarter: 2008Q1

REPORT INFORMATION
  Report Type: 
  Country: None (occurrence: None)
  Receive Date: 20080204
  Receipt Date: 20080111
  Transmission Date: 20080703
  Serious: Yes (Hospitalization)
  Sender: FDA-Public Use
  Company Number: FR-WYE-H02405708

PATIENT
  Sex: Male

DRUGS (12)
  1. CORDARONE [Suspect]
     Route: 048
     Dates: end: 20071214
  2. CORDARONE [Suspect]
     Dosage: 6000 MG SINGLE DOSE
     Route: 048
     Dates: start: 20071215, end: 20071215
  3. BISOPROLOL FUMARATE [Suspect]
     Route: 048
     Dates: end: 20071214
  4. BISOPROLOL FUMARATE [Suspect]
     Dosage: 60 MG SINGLE DOSE
     Route: 048
     Dates: start: 20071215, end: 20071215
  5. PREVISCAN [Suspect]
     Route: 048
     Dates: end: 20071214
  6. PREVISCAN [Suspect]
     Dosage: 300 MG SINGLE DOSE
     Route: 048
     Dates: start: 20071215, end: 20071215
  7. GLUCOPHAGE [Concomitant]
     Dosage: NOT PROVIDED
     Route: 048
  8. KARDEGIC [Concomitant]
     Route: 048
  9. ALDACTONE [Concomitant]
     Route: 048
  10. LASILIX [Concomitant]
     Route: 065
  11. DI-ANTALVIC [Suspect]
     Dosage: 8600 MG SINGLE DOSE
     Route: 048
     Dates: start: 20071215, end: 20071215
  12. ATACAND [Suspect]
     Dosage: 48 MG SINGLE DOSE
     Route: 048
     Dates: start: 20071215, end: 20071215

REACTIONS (5)
  - ANGER [None]
  - DYSPHORIA [None]
  - INTENTIONAL OVERDOSE [None]
  - IRRITABILITY [None]
  - SUICIDE ATTEMPT [None]
